FAERS Safety Report 9416374 (Version 2)
Quarter: 2013Q3

REPORT INFORMATION
  Report Type: Spontaneous
  Country: AU (occurrence: None)
  Receive Date: 20130718
  Receipt Date: 20130827
  Transmission Date: 20140515
  Serious: Yes (Disabling)
  Sender: FDA-Public Use
  Company Number: DSU-2013-03924

PATIENT
  Age: 63 Year
  Sex: Female
  Weight: 68 kg

DRUGS (2)
  1. OLMETEC PLUS [Suspect]
     Indication: HYPERTENSION
     Dosage: 40/25 MG, PER ORAL
     Route: 048
     Dates: end: 20130702
  2. SULFASALAZINE [Suspect]
     Indication: PRODUCT USED FOR UNKNOWN INDICATION

REACTIONS (7)
  - Colitis microscopic [None]
  - Rectal polyp [None]
  - Large intestine polyp [None]
  - Dizziness [None]
  - Nausea [None]
  - Rash erythematous [None]
  - Chills [None]
